FAERS Safety Report 23379442 (Version 1)
Quarter: 2024Q1

REPORT INFORMATION
  Report Type: Spontaneous
  Country: US (occurrence: US)
  Receive Date: 20240108
  Receipt Date: 20240108
  Transmission Date: 20240410
  Serious: No
  Sender: FDA-Public Use
  Company Number: US-Prasco Laboratories-PRAS20240005

PATIENT
  Age: 74 Year
  Sex: Female

DRUGS (17)
  1. ESTRADIOL [Suspect]
     Active Substance: ESTRADIOL
     Indication: Vulvovaginal dryness
     Dosage: UNKNOWN
     Route: 067
  2. MONTELUKAST [Concomitant]
     Active Substance: MONTELUKAST SODIUM
     Dosage: 10 MG
  3. GEMTESA [Concomitant]
     Active Substance: VIBEGRON
     Dosage: 75 MG
  4. GABAPENTIN [Concomitant]
     Active Substance: GABAPENTIN
     Indication: Pain
     Dosage: 300 MG
  5. CLARITIN [Concomitant]
     Active Substance: LORATADINE
     Indication: Multiple allergies
  6. fluticasone propionate_ [Concomitant]
     Indication: Asthma
  7. fluticasone propionate_ [Concomitant]
  8. HYDROXYZINE [Concomitant]
     Active Substance: HYDROXYZINE HYDROCHLORIDE
     Indication: Sleep disorder
     Dosage: 25 MG
  9. LEVOTHYROXINE [Concomitant]
     Active Substance: LEVOTHYROXINE
     Indication: Thyroid disorder
     Dosage: 100 MCG
  10. BUPROPION [Concomitant]
     Active Substance: BUPROPION
     Indication: Depression
     Dosage: 300 MG
  11. TOPIRAMATE [Concomitant]
     Active Substance: TOPIRAMATE
     Dosage: 50 MG
  12. Melatonin Advanced Sleep [Concomitant]
     Indication: Sleep disorder
     Dosage: 10 MG
  13. TRELEGY ELLIPTA [Concomitant]
     Active Substance: FLUTICASONE FUROATE\UMECLIDINIUM BROMIDE\VILANTEROL TRIFENATATE
     Indication: Asthma
  14. ESOMEPRAZOLE [Concomitant]
     Active Substance: ESOMEPRAZOLE
  15. LATANOPROST [Concomitant]
     Active Substance: LATANOPROST
     Indication: Glaucoma
  16. E Environmental Sublingual Immunotherapy Antigen [Concomitant]
     Indication: Multiple allergies
     Dosage: ONE PUMP
     Route: 060
  17. SYSTANE (HYPROMELLOSE 2910 (4000 MPA.S)) [Concomitant]
     Active Substance: HYPROMELLOSE 2910 (4000 MPA.S)
     Indication: Eye lubrication therapy

REACTIONS (4)
  - Lip erythema [Not Recovered/Not Resolved]
  - Wrong technique in product usage process [None]
  - Exposure via mucosa [None]
  - Accidental exposure to product [None]

NARRATIVE: CASE EVENT DATE: 20240105
